FAERS Safety Report 15551012 (Version 4)
Quarter: 2018Q4

REPORT INFORMATION
  Report Type: Spontaneous
  Country: SK (occurrence: SK)
  Receive Date: 20181025
  Receipt Date: 20181115
  Transmission Date: 20190205
  Serious: Yes (Hospitalization)
  Sender: FDA-Public Use
  Company Number: SK-PFIZER INC-2018434841

PATIENT
  Age: 38 Year
  Sex: Male

DRUGS (2)
  1. ALPRAZOLAM. [Suspect]
     Active Substance: ALPRAZOLAM
     Indication: DRUG DEPENDENCE
     Dosage: 4 MG, DAILY
     Route: 065
  2. TIAPRID [Suspect]
     Active Substance: TIAPRIDE HYDROCHLORIDE
     Indication: DRUG DEPENDENCE
     Dosage: 500 MG, DAILY

REACTIONS (17)
  - Disorientation [Recovered/Resolved]
  - Hyperhidrosis [Unknown]
  - Diarrhoea [Not Recovered/Not Resolved]
  - Loss of consciousness [Recovered/Resolved]
  - Dysphagia [Unknown]
  - Dependence [Unknown]
  - Muscle spasms [Recovered/Resolved]
  - Withdrawal syndrome [Not Recovered/Not Resolved]
  - Nausea [Not Recovered/Not Resolved]
  - Tonic convulsion [Recovered/Resolved]
  - Pain [Not Recovered/Not Resolved]
  - Trismus [Recovered/Resolved]
  - Salivary hypersecretion [Unknown]
  - Torticollis [Recovered/Resolved]
  - Vomiting [Not Recovered/Not Resolved]
  - Partial seizures [Recovered/Resolved]
  - Dysarthria [Recovered/Resolved]
